FAERS Safety Report 7251244-5 (Version None)
Quarter: 2011Q1

REPORT INFORMATION
  Report Type: 
  Country: None (occurrence: None)
  Receive Date: 20110128
  Receipt Date: 20110118
  Transmission Date: 20110831
  Serious: Yes (Other)
  Sender: FDA-Public Use
  Company Number: CA-JNJFOC-20110105200

PATIENT
  Sex: Female
  Weight: 69 kg

DRUGS (7)
  1. METOPROLOL [Concomitant]
     Route: 065
  2. REMICADE [Suspect]
     Indication: PYODERMA GANGRENOSUM
     Route: 042
  3. PREVACID [Concomitant]
     Route: 065
  4. FIORINAL NOS [Concomitant]
     Route: 065
  5. ASA [Concomitant]
     Route: 065
  6. PREDNISONE [Concomitant]
     Route: 065
  7. AMITRIPTYLINE HCL [Concomitant]
     Route: 065

REACTIONS (1)
  - RENAL FAILURE [None]
